FAERS Safety Report 10195515 (Version 1)
Quarter: 2014Q2

REPORT INFORMATION
  Report Type: Report from Study
  Country: US (occurrence: US)
  Receive Date: 20140526
  Receipt Date: 20140526
  Transmission Date: 20141212
  Serious: Yes (Death, Life-Threatening)
  Sender: FDA-Public Use
  Company Number: US-BRISTOL-MYERS SQUIBB COMPANY-20776456

PATIENT
  Age: 67 Year
  Sex: Female
  Weight: 59 kg

DRUGS (11)
  1. NULOJIX [Suspect]
     Indication: RENAL TRANSPLANT
     Dosage: CUMULATIVE DOSE:4963 MG.
     Route: 042
     Dates: start: 20130915
  2. MYFORTIC [Concomitant]
     Route: 048
     Dates: start: 20130915
  3. PREDNISONE [Concomitant]
     Route: 048
     Dates: start: 20130918
  4. VITAMIN D [Concomitant]
     Route: 048
  5. BACTRIM DS [Concomitant]
     Route: 048
     Dates: start: 20130915
  6. PRAVASTATINE [Concomitant]
     Route: 048
  7. METOPROLOL [Concomitant]
     Route: 048
  8. ESOMEPRAZOLE [Concomitant]
     Route: 048
  9. AMLODIPINE [Concomitant]
     Route: 048
     Dates: start: 20130915
  10. CYCLOBENZAPRINE [Concomitant]
     Route: 048
  11. MULTIVITAMIN [Concomitant]
     Route: 048
     Dates: start: 20130915

REACTIONS (4)
  - Respiratory failure [Fatal]
  - Multi-organ failure [Fatal]
  - Septic shock [Unknown]
  - Pneumonia [Unknown]
